FAERS Safety Report 17388789 (Version 6)
Quarter: 2021Q4

REPORT INFORMATION
  Report Type: Spontaneous
  Country: US (occurrence: US)
  Receive Date: 20200207
  Receipt Date: 20211104
  Transmission Date: 20220303
  Serious: Yes (Other)
  Sender: FDA-Public Use
  Company Number: US-PFIZER INC-2020052696

PATIENT
  Age: 68 Year
  Sex: Male
  Weight: 54.43 kg

DRUGS (4)
  1. DILANTIN [Suspect]
     Active Substance: PHENYTOIN
     Dosage: 400 MG, DAILY (4 X 100MG CAPSULES DAILY, AT NIGHT TIME)
  2. DILANTIN [Suspect]
     Active Substance: PHENYTOIN
     Dosage: 100 MG, 4X/DAY
  3. TYLENOL [Suspect]
     Active Substance: ACETAMINOPHEN
     Indication: Nasopharyngitis
     Dosage: UNK
  4. VITAMIN D3 [Concomitant]
     Active Substance: CHOLECALCIFEROL
     Dosage: UNK

REACTIONS (21)
  - Seizure [Unknown]
  - Suicidal behaviour [Unknown]
  - Oropharyngeal pain [Unknown]
  - Blood test abnormal [Unknown]
  - Cognitive disorder [Unknown]
  - Feeling drunk [Unknown]
  - Head injury [Unknown]
  - Thinking abnormal [Unknown]
  - Insomnia [Unknown]
  - Bone density decreased [Unknown]
  - Weight decreased [Unknown]
  - Photosensitivity reaction [Unknown]
  - Cerebral disorder [Unknown]
  - Neurological symptom [Unknown]
  - Skin laxity [Unknown]
  - Fall [Unknown]
  - Depression [Unknown]
  - Muscle disorder [Unknown]
  - Apathy [Unknown]
  - Body height decreased [Unknown]
  - Decreased appetite [Unknown]

NARRATIVE: CASE EVENT DATE: 20211001
